FAERS Safety Report 9227060 (Version 1)
Quarter: 2013Q2

REPORT INFORMATION
  Report Type: Spontaneous
  Country: US (occurrence: None)
  Receive Date: 20130410
  Receipt Date: 20130410
  Transmission Date: 20140414
  Serious: No
  Sender: FDA-Public Use
  Company Number: None

PATIENT
  Sex: Female

DRUGS (1)
  1. RIVAROXABAN [Suspect]
     Indication: ATRIAL FIBRILLATION
     Dosage: 15 MG DAILY PO
     Route: 048

REACTIONS (3)
  - Hypotension [None]
  - Occult blood positive [None]
  - Gastric ulcer [None]
